FAERS Safety Report 8903711 (Version 5)
Quarter: 2014Q2

REPORT INFORMATION
  Report Type: Spontaneous
  Country: US (occurrence: US)
  Receive Date: 20121113
  Receipt Date: 20140626
  Transmission Date: 20141212
  Serious: Yes (Disabling)
  Sender: FDA-Public Use
  Company Number: US-009507513-1211USA004964

PATIENT
  Sex: Male

DRUGS (3)
  1. PROPECIA [Suspect]
     Indication: ANDROGENETIC ALOPECIA
     Dosage: 1 MG, QD
     Route: 048
     Dates: start: 20011112, end: 200304
  2. PROPECIA [Suspect]
     Dosage: 1 MG, UNK
     Dates: start: 200304, end: 200812
  3. ALBUTEROL [Concomitant]
     Indication: ASTHMA EXERCISE INDUCED
     Dosage: UNK
     Dates: start: 1995

REACTIONS (14)
  - Orgasm abnormal [Not Recovered/Not Resolved]
  - Loss of libido [Not Recovered/Not Resolved]
  - Erectile dysfunction [Not Recovered/Not Resolved]
  - Semen volume decreased [Not Recovered/Not Resolved]
  - Anxiety disorder [Not Recovered/Not Resolved]
  - Depression [Not Recovered/Not Resolved]
  - Fatigue [Not Recovered/Not Resolved]
  - Lethargy [Not Recovered/Not Resolved]
  - Gynaecomastia [Not Recovered/Not Resolved]
  - Back injury [Unknown]
  - Panic attack [Not Recovered/Not Resolved]
  - Asthma [Unknown]
  - Tremor [Unknown]
  - Vasectomy [Unknown]
